FAERS Safety Report 7534822-5 (Version None)
Quarter: 2011Q2

REPORT INFORMATION
  Report Type: 
  Country: None (occurrence: None)
  Receive Date: 20110609
  Receipt Date: 20080911
  Transmission Date: 20111010
  Serious: Yes (Other)
  Sender: FDA-Public Use
  Company Number: PHHY2008CA20673

PATIENT
  Sex: Female

DRUGS (2)
  1. DIOVAN [Suspect]
     Dosage: 80 MG, QD
     Route: 048
  2. DIOVAN HCT [Suspect]
     Dosage: 160/12.5 MG, QD
     Route: 048

REACTIONS (2)
  - ARRHYTHMIA [None]
  - EXTRASYSTOLES [None]
